FAERS Safety Report 9422191 (Version 1)
Quarter: 2013Q3

REPORT INFORMATION
  Report Type: Spontaneous
  Country: US (occurrence: None)
  Receive Date: 20130725
  Receipt Date: 20130725
  Transmission Date: 20140515
  Serious: Yes (Other)
  Sender: FDA-Public Use
  Company Number: None

PATIENT
  Age: 36 Year
  Sex: Male
  Weight: 78.93 kg

DRUGS (1)
  1. CIPRO [Suspect]
     Indication: PROSTATE INFECTION
     Dosage: 1 PILL
     Route: 048
     Dates: start: 20121215, end: 20130115

REACTIONS (10)
  - Arthralgia [None]
  - Tendon disorder [None]
  - Neuropathy peripheral [None]
  - Panic attack [None]
  - Tinnitus [None]
  - Memory impairment [None]
  - Paraesthesia [None]
  - Balance disorder [None]
  - Paraesthesia [None]
  - Paraesthesia [None]
